FAERS Safety Report 7813170-X (Version None)
Quarter: 2011Q4

REPORT INFORMATION
  Report Type: 
  Country: None (occurrence: None)
  Receive Date: 20111013
  Receipt Date: 20111007
  Transmission Date: 20120403
  Serious: Yes (Other)
  Sender: FDA-Public Use
  Company Number: US-SANOFI-AVENTIS-2011SA066359

PATIENT
  Age: 77 Year
  Sex: Female

DRUGS (3)
  1. NOVOLOG [Concomitant]
     Dosage: 5,6,6 USING IT THREE TMES A DAY
  2. LANTUS [Suspect]
     Dosage: DOSE:13 UNIT(S)
     Route: 058
     Dates: start: 20080101
  3. SOLOSTAR [Suspect]
     Dates: start: 20080101

REACTIONS (5)
  - PANCREATIC DISORDER [None]
  - LYMPHOMA [None]
  - BLOOD GLUCOSE INCREASED [None]
  - HYPOGLYCAEMIA [None]
  - LETHARGY [None]
